FAERS Safety Report 7054391-6 (Version None)
Quarter: 2010Q4

REPORT INFORMATION
  Report Type: 
  Country: None (occurrence: None)
  Receive Date: 20101015
  Receipt Date: 20101004
  Transmission Date: 20110411
  Serious: Yes (Disabling, Other)
  Sender: FDA-Public Use
  Company Number: OSCN-NO-1005S-0132

PATIENT
  Age: 40 Year
  Sex: Female

DRUGS (29)
  1. OMNISCAN [Suspect]
     Indication: TRANSPLANT
     Dosage: NR SINGLE DOSE, I.V.
     Route: 042
     Dates: start: 20060313, end: 20060313
  2. LANTHANUM CARBONATE (FOSRENOL) [Concomitant]
  3. RENAGEL [Concomitant]
  4. SACCHARATED IRON OXIDE (VENOFER) [Concomitant]
  5. PARICALCITROL (ZEMPLAR) [Concomitant]
  6. DARBEPOETIN ALFA (ARANSEP) [Concomitant]
  7. METOPROLOL (SELO-ZOK) [Concomitant]
  8. WARFARIN (MAREVAN) [Concomitant]
  9. ATORVASTATIN [Concomitant]
  10. RAMIPRIL [Concomitant]
  11. PLAVIX [Concomitant]
  12. STOLPIDEM (STILNOCT) [Concomitant]
  13. CINACALCET (MIMPARA) [Concomitant]
  14. CIPROFLOXACIN [Concomitant]
  15. VANCOMYCIN (VANCOMYCIN ^HOSPIRA^) [Concomitant]
  16. FOLIC ACID [Concomitant]
  17. VANCOMYCIN (VANCOMYCIN ^ALPHARMA^) [Concomitant]
  18. TRANDATE [Concomitant]
  19. INNOHEP [Concomitant]
  20. GLYCERYL TRINITRATE (NITROLINGUAL) [Concomitant]
  21. PARACETAMOL (PINEX) [Concomitant]
  22. CODEINE [Concomitant]
  23. METOCLOPRAMIDE (KETOGAN) [Concomitant]
  24. MELATONIN (CIRCADIN) [Concomitant]
  25. TRAMADOL (TRADOLAN) [Concomitant]
  26. ATORVASTATIN [Concomitant]
  27. VITAMIN B COMPLEX, PLAIN (B-COMBIN STARK) [Concomitant]
  28. VITAMIN C (NYCOPLUS C) [Concomitant]
  29. KETOBEMIDONE ( KETOGAN ) [Concomitant]

REACTIONS (7)
  - GAIT DISTURBANCE [None]
  - JOINT CONTRACTURE [None]
  - SKIN DISCOLOURATION [None]
  - SKIN FIBROSIS [None]
  - SKIN TIGHTNESS [None]
  - SOFT TISSUE DISORDER [None]
  - TENDON DISORDER [None]
